FAERS Safety Report 9717674 (Version 1)
Quarter: 2013Q4

REPORT INFORMATION
  Report Type: Spontaneous
  Country: DK (occurrence: DK)
  Receive Date: 20131127
  Receipt Date: 20131127
  Transmission Date: 20140711
  Serious: Yes (Hospitalization)
  Sender: FDA-Public Use
  Company Number: DK-WATSON-2013-21806

PATIENT
  Age: 82 Year
  Sex: Female

DRUGS (6)
  1. DIURAL [Suspect]
     Indication: CARDIAC FAILURE
     Route: 048
     Dates: start: 20131025, end: 20131107
  2. SPIRON /00006201/ [Suspect]
     Indication: CARDIAC FAILURE
     Dosage: 50 MG. STYRKE: 25 MG
     Route: 048
     Dates: start: 20121022, end: 20131107
  3. DIGOXIN DAK [Concomitant]
     Indication: PRODUCT USED FOR UNKNOWN INDICATION
     Dosage: UNK
     Route: 065
  4. LOSARTAN BLUEFISH [Concomitant]
     Indication: PRODUCT USED FOR UNKNOWN INDICATION
     Dosage: UNK
     Route: 065
  5. CARVEDILOL [Concomitant]
     Indication: PRODUCT USED FOR UNKNOWN INDICATION
     Dosage: UNK
     Route: 065
  6. MAGNESIA                           /00123201/ [Concomitant]
     Indication: PRODUCT USED FOR UNKNOWN INDICATION
     Dosage: UNK
     Route: 065

REACTIONS (1)
  - Hyponatraemia [Recovering/Resolving]
